FAERS Safety Report 9177032 (Version 1)
Quarter: 2013Q1

REPORT INFORMATION
  Report Type: Spontaneous
  Country: US (occurrence: None)
  Receive Date: 20130320
  Receipt Date: 20130320
  Transmission Date: 20140127
  Serious: Yes (Other)
  Sender: FDA-Public Use
  Company Number: None

PATIENT
  Sex: Female

DRUGS (8)
  1. ENBREL [Suspect]
     Route: 058
     Dates: start: 20120514, end: 20130319
  2. PREDNISONE [Concomitant]
  3. TRAMADOL [Concomitant]
  4. METOPROLOL [Concomitant]
  5. ALEVE [Concomitant]
  6. OMEPRAZOLE [Concomitant]
  7. TYLENOL [Concomitant]
  8. VITAMINS [Concomitant]

REACTIONS (1)
  - Haemorrhage [None]
